FAERS Safety Report 23108453 (Version 1)
Quarter: 2023Q4

REPORT INFORMATION
  Report Type: Spontaneous
  Country: US (occurrence: None)
  Receive Date: 20231024
  Receipt Date: 20231024
  Transmission Date: 20240110
  Serious: Yes (Hospitalization)
  Sender: FDA-Public Use
  Company Number: None

PATIENT
  Age: 76 Year
  Sex: Male
  Weight: 65.7 kg

DRUGS (1)
  1. ATEZOLIZUMAB [Suspect]
     Active Substance: ATEZOLIZUMAB
     Dates: start: 20230417, end: 20230417

REACTIONS (3)
  - Anaphylactic shock [None]
  - Acute respiratory failure [None]
  - Drug hypersensitivity [None]

NARRATIVE: CASE EVENT DATE: 20230417
